FAERS Safety Report 4300605-2 (Version None)
Quarter: 2004Q1

REPORT INFORMATION
  Report Type: 
  Country: None (occurrence: None)
  Receive Date: 20040220
  Receipt Date: 20040218
  Transmission Date: 20041129
  Serious: Yes (Death)
  Sender: FDA-Public Use
  Company Number: NO-ROCHE-359203

PATIENT
  Age: 87 Year
  Sex: Female

DRUGS (6)
  1. NAPROSYN [Suspect]
     Indication: GOUT
     Route: 048
  2. ALBYL E [Concomitant]
     Indication: ATRIAL FIBRILLATION
     Route: 048
  3. DIGITOXIN INJ [Concomitant]
     Indication: ATRIAL FIBRILLATION
     Route: 048
  4. ATARAX [Concomitant]
     Route: 048
  5. DIURAL [Concomitant]
     Route: 048
  6. OVESTERIN [Concomitant]
     Route: 048

REACTIONS (1)
  - DUODENAL ULCER HAEMORRHAGE [None]
